FAERS Safety Report 7532975-6 (Version None)
Quarter: 2011Q2

REPORT INFORMATION
  Report Type: 
  Country: None (occurrence: None)
  Receive Date: 20110608
  Receipt Date: 20110526
  Transmission Date: 20111010
  Serious: Yes (Hospitalization)
  Sender: FDA-Public Use
  Company Number: DK-GENZYME-CAMP-1001082

PATIENT
  Sex: Male
  Weight: 61 kg

DRUGS (16)
  1. CAMPATH [Suspect]
     Indication: CHRONIC LYMPHOCYTIC LEUKAEMIA
     Dosage: UNK
     Route: 042
  2. FLUDARABINE PHOSPHATE [Suspect]
     Dosage: 60 MG, QD DAY 1-3 EVERY 4 WEEKS, CYCLE 4
     Route: 048
     Dates: start: 20060808, end: 20060810
  3. FLUDARABINE PHOSPHATE [Suspect]
     Dosage: 60 MG, QD DAY 1-3 EVERY 4 WEEKS, CYCLE 5
     Route: 048
     Dates: start: 20060905, end: 20060907
  4. ANTIBIOTICS [Concomitant]
     Indication: PRODUCT USED FOR UNKNOWN INDICATION
     Dosage: UNK
     Route: 065
  5. CYCLOPHOSPHAMIDE [Suspect]
     Indication: CHRONIC LYMPHOCYTIC LEUKAEMIA
     Dosage: 450 MG, QD DAY 1-3 EVERY 4 WEEKS, CYCLE 1
     Route: 048
     Dates: start: 20060509, end: 20060511
  6. CYCLOPHOSPHAMIDE [Suspect]
     Dosage: 400 MG, QD DAY 1-3 EVERY 4 WEEKS CYCLE 2
     Route: 048
     Dates: start: 20060606, end: 20060608
  7. CYCLOPHOSPHAMIDE [Suspect]
     Dosage: 400 MG, QD DAY 1-3 EVERY 4 WEEKS, CYCLE 5
     Route: 048
     Dates: start: 20060905, end: 20060907
  8. HEPARIN [Concomitant]
     Indication: PRODUCT USED FOR UNKNOWN INDICATION
     Dosage: UNK
     Route: 065
  9. FLUDARABINE PHOSPHATE [Suspect]
     Dosage: 60 MG, QD DAY 1-3 EVERY 4 WEEKS, CYCLE 2
     Route: 048
     Dates: start: 20060606, end: 20060608
  10. FLUDARABINE PHOSPHATE [Suspect]
     Dosage: 70 MG, QD DAY 1-3 EVERY 4 WEEKS, CYCLE 6
     Route: 048
     Dates: start: 20061003, end: 20061005
  11. FLUDARABINE PHOSPHATE [Suspect]
     Indication: CHRONIC LYMPHOCYTIC LEUKAEMIA
     Dosage: 70 MG, QD DAY 1-3 EVERY 4 WEEKS, CYCLE 1
     Route: 048
     Dates: start: 20060509, end: 20060511
  12. CYCLOPHOSPHAMIDE [Suspect]
     Dosage: 400 MG, QD DAY 1-3 EVERY 4 WEEKS, CYCLE 3
     Route: 048
     Dates: start: 20060703, end: 20060705
  13. CYCLOPHOSPHAMIDE [Suspect]
     Dosage: 400 MG, QD DAY 1-3 EVERY 4 WEEKS, CYCLE 4
     Route: 048
     Dates: start: 20060808, end: 20060810
  14. FLUDARABINE PHOSPHATE [Suspect]
     Dosage: 60 MG, QD DAY 1-3 EVERY 4 WEEKS, CYCLE 3
     Route: 048
     Dates: start: 20060703, end: 20060705
  15. CYCLOPHOSPHAMIDE [Suspect]
     Dosage: 400 MG, QD DAY 1-3 EVERY 4 WEEKS, CYCLE 6
     Route: 048
     Dates: start: 20061003, end: 20061005
  16. ANALGESICS [Concomitant]
     Indication: PRODUCT USED FOR UNKNOWN INDICATION
     Dosage: UNK
     Route: 065

REACTIONS (1)
  - DESMOID TUMOUR [None]
